FAERS Safety Report 7509144-9 (Version None)
Quarter: 2011Q2

REPORT INFORMATION
  Report Type: 
  Country: None (occurrence: None)
  Receive Date: 20110527
  Receipt Date: 20110516
  Transmission Date: 20111010
  Serious: Yes (Death, Other)
  Sender: FDA-Public Use
  Company Number: US-CELGENEUS-163-21880-11031819

PATIENT
  Sex: Male

DRUGS (7)
  1. DEXAMETHASONE [Concomitant]
     Route: 051
     Dates: start: 20101201
  2. MORPHINE [Concomitant]
     Indication: PAIN
     Route: 051
     Dates: start: 20110223
  3. REVLIMID [Suspect]
     Indication: MULTIPLE MYELOMA
     Dosage: 25 MILLIGRAM
     Route: 048
     Dates: start: 20110112, end: 20110223
  4. AMLODIPINE [Concomitant]
     Indication: HYPERTENSION
     Route: 048
  5. WARFARIN SODIUM [Concomitant]
     Dosage: 5 MILLIGRAM
     Route: 065
     Dates: start: 20110112, end: 20110223
  6. CEFAZOLIN [Concomitant]
     Indication: PREOPERATIVE CARE
     Route: 051
     Dates: start: 20110228, end: 20110228
  7. DEXAMETHASONE [Concomitant]
     Route: 048
     Dates: start: 20101201

REACTIONS (2)
  - THROMBOPHLEBITIS SUPERFICIAL [None]
  - PULMONARY EMBOLISM [None]
